FAERS Safety Report 25531243 (Version 1)
Quarter: 2025Q3

REPORT INFORMATION
  Report Type: Spontaneous
  Country: US (occurrence: US)
  Receive Date: 20250708
  Receipt Date: 20250708
  Transmission Date: 20251021
  Serious: No
  Sender: TEVA
  Company Number: US-TEVA-VS-3348877

PATIENT
  Age: 72 Year
  Sex: Male

DRUGS (1)
  1. AJOVY [Suspect]
     Active Substance: FREMANEZUMAB-VFRM
     Indication: Cluster headache
     Dosage: 225MG/1.5ML, INJECT 1.5ML UNDER THE SKIN MONTHLY
     Route: 065

REACTIONS (3)
  - Off label use [Unknown]
  - Headache [Unknown]
  - Product use issue [Unknown]
